FAERS Safety Report 4315622-6 (Version None)
Quarter: 2004Q1

REPORT INFORMATION
  Report Type: 
  Country: None (occurrence: None)
  Receive Date: 20040311
  Receipt Date: 20040311
  Transmission Date: 20041129
  Serious: Yes (Life-Threatening, Hospitalization)
  Sender: FDA-Public Use
  Company Number: GB-GLAXOSMITHKLINE-A0502207A

PATIENT
  Age: 65 Year
  Sex: Male

DRUGS (5)
  1. NAVELBINE [Suspect]
     Indication: NON-SMALL CELL LUNG CANCER
     Dosage: 30MGM2 PER DAY
     Route: 042
     Dates: start: 20031110
  2. CISPLATIN [Suspect]
     Indication: NON-SMALL CELL LUNG CANCER
     Dosage: 80MGM2 PER DAY
     Route: 042
     Dates: start: 20031110
  3. AMITRIPTYLINE HCL [Concomitant]
     Indication: NEUROPATHIC PAIN
  4. ARTHROTEC [Concomitant]
     Indication: PAIN
  5. ACETYLSALICYLIC ACID [Concomitant]
     Indication: CARDIOVASCULAR DISORDER

REACTIONS (2)
  - HERPES ZOSTER [None]
  - NEUTROPENIC SEPSIS [None]
